FAERS Safety Report 5825679-9 (Version None)
Quarter: 2008Q3

REPORT INFORMATION
  Report Type: 
  Country: None (occurrence: None)
  Receive Date: 20080729
  Receipt Date: 20080718
  Transmission Date: 20090109
  Serious: No
  Sender: FDA-Public Use
  Company Number: US-ROCHE-539309

PATIENT
  Sex: Female
  Weight: 80.3 kg

DRUGS (10)
  1. BONIVA [Suspect]
     Indication: OSTEOPENIA
     Dosage: DRUG WAS DISCONTINUED AFTER 1 DOSE.
     Route: 065
     Dates: start: 20080101, end: 20080101
  2. NEXIUM [Concomitant]
  3. SINGULAIR [Concomitant]
  4. ATENOLOL [Concomitant]
  5. LIPITOR [Concomitant]
  6. UNSPECIFIED MEDICATION [Concomitant]
     Dosage: DRUG REPORTED AS HCGT
  7. LEVSIN SL [Concomitant]
  8. RHINOCORT [Concomitant]
  9. ALPRAZOLAM [Concomitant]
  10. CLARINEX [Concomitant]

REACTIONS (8)
  - ANOREXIA [None]
  - ARTHRALGIA [None]
  - CHEST PAIN [None]
  - DYSPNOEA [None]
  - MALAISE [None]
  - MYALGIA [None]
  - PAIN [None]
  - PAIN IN JAW [None]
